FAERS Safety Report 5470650-2 (Version None)
Quarter: 2007Q3

REPORT INFORMATION
  Report Type: 
  Country: None (occurrence: None)
  Receive Date: 20070925
  Receipt Date: 20070914
  Transmission Date: 20080115
  Serious: Yes (Other)
  Sender: FDA-Public Use
  Company Number: GXKR2007DK08020

PATIENT
  Age: 62 Year
  Sex: Female
  Weight: 68 kg

DRUGS (6)
  1. SIMVASTATIN [Suspect]
     Dosage: 40  MG, ORAL
     Route: 048
  2. CYMBALTA [Suspect]
     Indication: DEPRESSION
     Dosage: 60 MG, ORAL
     Route: 048
     Dates: start: 20070531, end: 20070612
  3. AMLODIPINE [Suspect]
     Dosage: 5 MG, ORAL
     Route: 048
  4. TENORMIN [Suspect]
     Dosage: 25 MG, ORAL
     Route: 048
  5. RISOLID (CHLORDIAZEPOXIDE) [Concomitant]
  6. ANTABUSE [Concomitant]

REACTIONS (5)
  - ACCOMMODATION DISORDER [None]
  - DRUG INTERACTION [None]
  - EYE PAIN [None]
  - GLAUCOMA [None]
  - PRURITUS GENERALISED [None]
